FAERS Safety Report 6003215-4 (Version None)
Quarter: 2008Q4

REPORT INFORMATION
  Report Type: 
  Country: None (occurrence: None)
  Receive Date: 20081215
  Receipt Date: 20081215
  Transmission Date: 20090506
  Serious: No
  Sender: FDA-Public Use
  Company Number: None

PATIENT
  Age: 50 Year
  Sex: Male
  Weight: 65.3 kg

DRUGS (1)
  1. PAROXETINE HCL [Suspect]
     Dosage: 40 MG AM PO
     Route: 048
     Dates: start: 20050111, end: 20081119

REACTIONS (1)
  - INAPPROPRIATE ANTIDIURETIC HORMONE SECRETION [None]
